FAERS Safety Report 9162636 (Version 1)
Quarter: 2013Q1

REPORT INFORMATION
  Report Type: Spontaneous
  Country: US (occurrence: US)
  Receive Date: 20130314
  Receipt Date: 20130314
  Transmission Date: 20140127
  Serious: Yes (Disabling)
  Sender: FDA-Public Use
  Company Number: US-SANOFI-AVENTIS-2013SA024428

PATIENT
  Age: 59 Year
  Sex: Male

DRUGS (1)
  1. LANTUS [Suspect]
     Indication: TYPE 2 DIABETES MELLITUS
     Route: 051
     Dates: end: 201302

REACTIONS (2)
  - Neuropathic arthropathy [Not Recovered/Not Resolved]
  - Walking disability [Not Recovered/Not Resolved]
